FAERS Safety Report 7607429-9 (Version None)
Quarter: 2011Q3

REPORT INFORMATION
  Report Type: 
  Country: None (occurrence: None)
  Receive Date: 20110713
  Receipt Date: 20110628
  Transmission Date: 20111222
  Serious: Yes (Other)
  Sender: FDA-Public Use
  Company Number: US-BAYER-2011-057871

PATIENT
  Age: 41 Year
  Sex: Female

DRUGS (4)
  1. IBUPROFEN (ADVIL) [Suspect]
     Indication: HEADACHE
     Dosage: EVERY 4 TO 6 HOURS
     Route: 048
     Dates: end: 20101201
  2. IBUPROFEN (ADVIL) [Suspect]
     Indication: ARTHRITIS
     Dosage: 2 DF, TID
  3. ALEVE (CAPLET) [Suspect]
     Indication: ARTHRITIS
     Dosage: COUNT SIZE NOT REPORTED
     Dates: end: 20101201
  4. CELEBREX [Concomitant]
     Indication: ARTHRITIS

REACTIONS (5)
  - GASTROOESOPHAGEAL REFLUX DISEASE [None]
  - THROAT IRRITATION [None]
  - COUGH [None]
  - DYSPHONIA [None]
  - PHARYNGEAL ERYTHEMA [None]
